FAERS Safety Report 4610095-8 (Version None)
Quarter: 2005Q1

REPORT INFORMATION
  Report Type: 
  Country: None (occurrence: None)
  Receive Date: 20050316
  Receipt Date: 20050304
  Transmission Date: 20050727
  Serious: Yes (Hospitalization)
  Sender: FDA-Public Use
  Company Number: FR-SANOFI-SYNTHELABO-A02200500607

PATIENT
  Age: 84 Year
  Sex: Male

DRUGS (6)
  1. PLAVIX [Suspect]
     Indication: DRUG USE FOR UNKNOWN INDICATION
     Route: 048
  2. ATARAX [Suspect]
     Indication: DRUG USE FOR UNKNOWN INDICATION
     Route: 048
  3. ZYLORIC [Suspect]
     Indication: DRUG USE FOR UNKNOWN INDICATION
     Dosage: UNK
     Route: 048
  4. AUGMENTIN '125' [Suspect]
     Indication: DRUG USE FOR UNKNOWN INDICATION
     Route: 065
     Dates: start: 20050110, end: 20050118
  5. LOVENOX [Suspect]
     Indication: DRUG USE FOR UNKNOWN INDICATION
     Route: 058
     Dates: end: 20050119
  6. BURINEX [Suspect]
     Indication: DRUG USE FOR UNKNOWN INDICATION
     Dosage: UNK
     Route: 048
     Dates: end: 20050118

REACTIONS (4)
  - CONGESTIVE CARDIOMYOPATHY [None]
  - DRUG RASH WITH EOSINOPHILIA AND SYSTEMIC SYMPTOMS [None]
  - EYELID OEDEMA [None]
  - NEPHRITIS INTERSTITIAL [None]
